FAERS Safety Report 5951247-4 (Version None)
Quarter: 2008Q4

REPORT INFORMATION
  Report Type: 
  Country: None (occurrence: None)
  Receive Date: 20081112
  Receipt Date: 20081112
  Transmission Date: 20090506
  Serious: Yes (Hospitalization)
  Sender: FDA-Public Use
  Company Number: None

PATIENT
  Sex: Male
  Weight: 76.1 kg

DRUGS (4)
  1. METHOTREXATE [Suspect]
     Dosage: 6 G
  2. RITUXIMAB(MOAB C2B8 ANTI CD20, CHIMERIC) [Suspect]
     Dosage: 700 MG
  3. TEMOZOLOMIDE [Suspect]
     Dosage: 1800 MG
  4. DILAUDID [Concomitant]

REACTIONS (16)
  - ABDOMINAL PAIN [None]
  - COLITIS [None]
  - DEHYDRATION [None]
  - FEBRILE NEUTROPENIA [None]
  - HAEMOGLOBIN DECREASED [None]
  - HEADACHE [None]
  - HYDROCEPHALUS [None]
  - HYPERTENSION [None]
  - MENINGITIS STAPHYLOCOCCAL [None]
  - NAUSEA [None]
  - PAIN [None]
  - RECTAL HAEMORRHAGE [None]
  - STAPHYLOCOCCAL BACTERAEMIA [None]
  - VOMITING [None]
  - WHITE BLOOD CELL COUNT DECREASED [None]
  - WITHDRAWAL SYNDROME [None]
